FAERS Safety Report 4856148-0 (Version None)
Quarter: 2005Q4

REPORT INFORMATION
  Report Type: 
  Country: None (occurrence: None)
  Receive Date: 20051216
  Receipt Date: 20050829
  Transmission Date: 20060501
  Serious: Yes (Disabling)
  Sender: FDA-Public Use
  Company Number: US-MERCK-0508USA04777

PATIENT
  Age: 32 Year
  Sex: Female
  Weight: 106 kg

DRUGS (1)
  1. VIOXX [Suspect]
     Indication: PAIN
     Route: 048
     Dates: start: 20020101, end: 20030101

REACTIONS (7)
  - ABDOMINAL PAIN UPPER [None]
  - ARTHROPATHY [None]
  - CHEST PAIN [None]
  - INCONTINENCE [None]
  - INTERVERTEBRAL DISC PROTRUSION [None]
  - MUSCLE SPASMS [None]
  - PAIN [None]
